FAERS Safety Report 14937624 (Version 4)
Quarter: 2018Q3

REPORT INFORMATION
  Report Type: Spontaneous
  Country: DE (occurrence: DE)
  Receive Date: 20180525
  Receipt Date: 20180705
  Transmission Date: 20181010
  Serious: Yes (Hospitalization, Other)
  Sender: FDA-Public Use
  Company Number: PHHY2018DE006061

PATIENT
  Sex: Male

DRUGS (22)
  1. VALSARTAN. [Concomitant]
     Active Substance: VALSARTAN
     Indication: HYPERTENSION
     Dosage: 80 MG, QD
     Route: 048
  2. METHOTREXATE. [Suspect]
     Active Substance: METHOTREXATE
     Indication: B-CELL LYMPHOMA
     Dosage: 0.15 G/M2, (1X BEFORE START CTX, 1X AFTER CTX)
     Route: 042
     Dates: start: 20170815
  3. METHOTREXATE. [Suspect]
     Active Substance: METHOTREXATE
     Dosage: 0.15 G/M2, (1X BEFORE START CTX, 1X AFTER CTX)
     Route: 042
     Dates: start: 20180102
  4. CYCLOPHOSPHAMIDE. [Suspect]
     Active Substance: CYCLOPHOSPHAMIDE
     Dosage: 750 MG/M2, (D2)
     Route: 042
     Dates: start: 20171201
  5. VALSARTAN HCT [Concomitant]
     Active Substance: HYDROCHLOROTHIAZIDE\VALSARTAN
     Dosage: UNK
     Route: 065
  6. SIMVASTATIN. [Concomitant]
     Active Substance: SIMVASTATIN
     Indication: HYPERCHOLESTEROLAEMIA
     Dosage: 40 MG, (0?0?1/2)
     Route: 048
  7. ACETYLSALICYLIC ACID [Concomitant]
     Active Substance: ASPIRIN
     Indication: ANTICOAGULANT THERAPY
     Dosage: 100 MG, QD
     Route: 048
     Dates: start: 20170923
  8. DOXORUBICIN [Suspect]
     Active Substance: DOXORUBICIN
     Dosage: 50 MG/M2, UNK
     Route: 042
     Dates: start: 20171201
  9. CYCLOPHOSPHAMIDE. [Suspect]
     Active Substance: CYCLOPHOSPHAMIDE
     Indication: B-CELL LYMPHOMA
     Dosage: 750 MG/M2, (D2)
     Route: 042
     Dates: start: 20170905
  10. VINCRISTINE [Suspect]
     Active Substance: VINCRISTINE
     Indication: B-CELL LYMPHOMA
     Dosage: 3.7 MG, D2
     Route: 042
     Dates: start: 20170905
  11. LEUCOVORIN CALCIUM. [Suspect]
     Active Substance: LEUCOVORIN CALCIUM
     Indication: B-CELL LYMPHOMA
     Dosage: 30 MG, PRN (DEPENDING ON MTX LEVEL IN BLOOD, D1?D4)
     Route: 042
     Dates: start: 20170816
  12. LEUCOVORIN CALCIUM. [Suspect]
     Active Substance: LEUCOVORIN CALCIUM
     Dosage: 30 MG, PRN (DEPENDING ON MTX LEVEL IN BLOOD, D1?D4)
     Route: 042
     Dates: start: 20180106
  13. DOXORUBICIN [Suspect]
     Active Substance: DOXORUBICIN
     Indication: B-CELL LYMPHOMA
     Dosage: 50 MG/M2, UNK
     Route: 042
     Dates: start: 20170905
  14. METOPROLOL TARTRATE. [Concomitant]
     Active Substance: METOPROLOL TARTRATE
     Indication: HYPERTENSION
     Dosage: 47.5 MG, QD
     Route: 048
  15. PEGFILGRASTIM [Suspect]
     Active Substance: PEGFILGRASTIM
     Indication: B-CELL LYMPHOMA
     Dosage: 6 MG, UNK (D4)
     Route: 058
     Dates: start: 20170907
  16. PEGFILGRASTIM [Suspect]
     Active Substance: PEGFILGRASTIM
     Dosage: 6 MG, UNK (D4)
     Route: 058
     Dates: start: 20171204
  17. VALSARTAN HCT [Concomitant]
     Active Substance: HYDROCHLOROTHIAZIDE\VALSARTAN
     Dosage: 160/12.5MG, QD (1?0?0)
     Route: 048
  18. PREDNISOLONE. [Suspect]
     Active Substance: PREDNISOLONE
     Dosage: 100 MG, D1?5
     Route: 048
     Dates: start: 20171201
  19. VALSARTAN HCT [Concomitant]
     Active Substance: HYDROCHLOROTHIAZIDE\VALSARTAN
     Indication: HYPERTENSION
     Dosage: 1 DF, QD (1?0?0)
     Route: 065
  20. RITUXIMAB. [Suspect]
     Active Substance: RITUXIMAB
     Indication: B-CELL LYMPHOMA
     Dosage: 375 MG/M2, UNK (PRIOR TO AE)
     Route: 042
  21. PREDNISOLONE. [Suspect]
     Active Substance: PREDNISOLONE
     Indication: B-CELL LYMPHOMA
     Dosage: 100 MG, D1?5
     Route: 048
     Dates: start: 20170814
  22. VINCRISTINE [Suspect]
     Active Substance: VINCRISTINE
     Dosage: 3.7 MG, D2
     Route: 042
     Dates: start: 20171201

REACTIONS (1)
  - Circulatory collapse [Recovered/Resolved]

NARRATIVE: CASE EVENT DATE: 20180223
